FAERS Safety Report 19246593 (Version 1)
Quarter: 2021Q2

REPORT INFORMATION
  Report Type: Spontaneous
  Country: BR (occurrence: BR)
  Receive Date: 20210512
  Receipt Date: 20210512
  Transmission Date: 20210717
  Serious: Yes (Hospitalization, Other)
  Sender: FDA-Public Use
  Company Number: BR-AMGEN-BRASP2021069592

PATIENT
  Age: 1 Year
  Sex: Male

DRUGS (3)
  1. AZITHROMYCIN ANHYDROUS. [Concomitant]
     Active Substance: AZITHROMYCIN ANHYDROUS
     Indication: PROPHYLAXIS
     Dosage: UNK
  2. AMOXICILLIN. [Concomitant]
     Active Substance: AMOXICILLIN
     Indication: PROPHYLAXIS
     Dosage: UNK
  3. FILGRASTIM [Suspect]
     Active Substance: FILGRASTIM
     Indication: NEUTROPENIA
     Dosage: UNK
     Route: 065

REACTIONS (12)
  - Varicella [Unknown]
  - Anaemia [Unknown]
  - Bronchiolitis [Unknown]
  - Off label use [Unknown]
  - Cellulitis [Unknown]
  - Sepsis [Unknown]
  - Pneumonia [Unknown]
  - Tonsillitis [Unknown]
  - Gastroenteritis [Unknown]
  - Laryngitis [Unknown]
  - Pseudomembranous colitis [Unknown]
  - Dengue fever [Unknown]
